FAERS Safety Report 6148132-4 (Version None)
Quarter: 2009Q2

REPORT INFORMATION
  Report Type: 
  Country: None (occurrence: None)
  Receive Date: 20090408
  Receipt Date: 20090327
  Transmission Date: 20091009
  Serious: Yes (Hospitalization)
  Sender: FDA-Public Use
  Company Number: JP-ASTRAZENECA-2009AP01800

PATIENT
  Age: 37 Year
  Sex: Female
  Weight: 57 kg

DRUGS (12)
  1. SEROQUEL [Suspect]
     Route: 048
     Dates: start: 20080215, end: 20080215
  2. LEVOTOMIN [Suspect]
     Route: 048
     Dates: start: 20080215, end: 20080215
  3. PAROXETINE HCL [Suspect]
     Route: 048
     Dates: end: 20090215
  4. PAROXETINE HCL [Suspect]
     Route: 048
     Dates: start: 20090215, end: 20090215
  5. TETRAMIDE [Suspect]
     Route: 048
     Dates: start: 20080215, end: 20080215
  6. TETRAMIDE [Suspect]
     Route: 048
     Dates: end: 20080215
  7. SUCRALFATE [Concomitant]
     Dates: end: 20080215
  8. ROHYPNOL [Concomitant]
     Dates: end: 20080215
  9. HALCION [Concomitant]
     Dates: end: 20080215
  10. VOLTAREN [Concomitant]
  11. DEPAS [Concomitant]
     Dates: end: 20080215
  12. U PAN [Concomitant]
     Dates: end: 20080215

REACTIONS (2)
  - INTERSTITIAL LUNG DISEASE [None]
  - OVERDOSE [None]
